FAERS Safety Report 12583069 (Version 7)
Quarter: 2016Q3

REPORT INFORMATION
  Report Type: Spontaneous
  Country: IT (occurrence: IT)
  Receive Date: 20160722
  Receipt Date: 20160920
  Transmission Date: 20161109
  Serious: Yes (Hospitalization, Other)
  Sender: FDA-Public Use
  Company Number: IT-PFIZER INC-2016347501

PATIENT
  Age: 81 Year
  Sex: Female

DRUGS (9)
  1. ASCRIPTIN [Concomitant]
     Active Substance: ASPIRIN
     Dosage: UNK
  2. TRIATEC [Suspect]
     Active Substance: RAMIPRIL
     Indication: ESSENTIAL HYPERTENSION
     Dosage: 5 MG, DAILY
     Route: 048
     Dates: start: 20150101, end: 20160110
  3. NORVASC [Concomitant]
     Active Substance: AMLODIPINE BESYLATE
     Dosage: UNK
  4. ATORVASTATIN [Concomitant]
     Active Substance: ATORVASTATIN
     Dosage: UNK
  5. NORMIX [Concomitant]
     Active Substance: RIFAXIMIN
     Dosage: UNK
  6. CLEXANE [Concomitant]
     Active Substance: ENOXAPARIN SODIUM
     Dosage: UNK
  7. LENTO-KALIUM [Concomitant]
     Dosage: UNK
  8. TRIPLIAM [Suspect]
     Active Substance: AMLODIPINE\INDAPAMIDE\PERINDOPRIL
     Indication: ESSENTIAL HYPERTENSION
     Dosage: 1 MG, DAILY 10 MG/2.5 MG/5 MG TABLET (PERINDOPRIL/ARGININE/INDAPAMIDE
     Route: 048
     Dates: start: 20150101, end: 20160110
  9. PANTOPRAZOLE [Suspect]
     Active Substance: PANTOPRAZOLE SODIUM
     Indication: ANTACID THERAPY
     Dosage: 40 MG, DAILY
     Route: 048
     Dates: start: 20150101, end: 20160110

REACTIONS (7)
  - Vomiting [Recovering/Resolving]
  - Confusional state [Recovered/Resolved]
  - Nausea [Recovering/Resolving]
  - Weight decreased [Recovering/Resolving]
  - Hypokalaemia [Recovering/Resolving]
  - Hyponatraemia [Recovering/Resolving]
  - Diarrhoea [Recovering/Resolving]

NARRATIVE: CASE EVENT DATE: 20160110
